FAERS Safety Report 24115984 (Version 2)
Quarter: 2024Q4

REPORT INFORMATION
  Report Type: Spontaneous
  Country: DE (occurrence: DE)
  Receive Date: 20240722
  Receipt Date: 20241008
  Transmission Date: 20250115
  Serious: Yes (Other)
  Sender: NOVARTIS
  Company Number: DE-002147023-NVSC2024DE144366

PATIENT
  Sex: Male

DRUGS (1)
  1. KESIMPTA [Suspect]
     Active Substance: OFATUMUMAB
     Indication: Relapsing multiple sclerosis
     Dosage: 20 MG
     Route: 065

REACTIONS (2)
  - Polyarthritis [Unknown]
  - Pain [Unknown]
